FAERS Safety Report 6854560-1 (Version None)
Quarter: 2010Q3

REPORT INFORMATION
  Report Type: 
  Country: None (occurrence: None)
  Receive Date: 20100717
  Receipt Date: 20080204
  Transmission Date: 20110219
  Serious: No
  Sender: FDA-Public Use
  Company Number: US-PFIZER INC-2007097401

PATIENT
  Sex: Male
  Weight: 92.3 kg

DRUGS (15)
  1. CHANTIX [Suspect]
     Indication: SMOKING CESSATION THERAPY
     Dates: start: 20070101
  2. PROVIGIL [Concomitant]
  3. VENLAFAXINE HYDROCHLORIDE [Concomitant]
  4. ALL OTHER THERAPEUTIC PRODUCTS [Concomitant]
  5. TOFRANIL [Concomitant]
  6. ALTACE [Concomitant]
  7. ACETYLSALICYLIC ACID [Concomitant]
  8. MULTI-VITAMINS [Concomitant]
  9. METFORMIN HCL [Concomitant]
  10. ACIPHEX [Concomitant]
  11. PLAVIX [Concomitant]
  12. DOXAZOSIN [Concomitant]
     Indication: PROSTATOMEGALY
  13. COREG [Concomitant]
  14. VYTORIN [Concomitant]
  15. BENAZEPRIL HYDROCHLORIDE [Concomitant]

REACTIONS (4)
  - ABNORMAL DREAMS [None]
  - AGITATION [None]
  - ANXIETY [None]
  - INSOMNIA [None]
